FAERS Safety Report 10391531 (Version 2)
Quarter: 2014Q3

REPORT INFORMATION
  Report Type: Spontaneous
  Country: US (occurrence: US)
  Receive Date: 20140818
  Receipt Date: 20140818
  Transmission Date: 20150326
  Serious: Yes (Hospitalization, Disabling, Other)
  Sender: FDA-Public Use
  Company Number: US-009507513-2010SP055002

PATIENT
  Sex: Female
  Weight: 117.94 kg

DRUGS (2)
  1. NUVARING [Suspect]
     Active Substance: ETHINYL ESTRADIOL\ETONOGESTREL
     Indication: CONTRACEPTION
     Route: 067
     Dates: start: 20091126, end: 20100301
  2. NUVARING [Suspect]
     Active Substance: ETHINYL ESTRADIOL\ETONOGESTREL
     Indication: MENSTRUAL CYCLE MANAGEMENT

REACTIONS (10)
  - Herpes zoster [Unknown]
  - Eye swelling [Unknown]
  - Dental discomfort [Unknown]
  - Pleural effusion [Recovered/Resolved]
  - Scoliosis [Unknown]
  - Pulmonary embolism [Recovered/Resolved]
  - Musculoskeletal chest pain [Unknown]
  - Pulmonary infarction [Recovered/Resolved]
  - Sinus headache [Unknown]
  - Depression [Recovered/Resolved]

NARRATIVE: CASE EVENT DATE: 20091225
